FAERS Safety Report 9798038 (Version 3)
Quarter: 2015Q1

REPORT INFORMATION
  Report Type: Spontaneous
  Country: US (occurrence: US)
  Receive Date: 20140106
  Receipt Date: 20150210
  Transmission Date: 20150721
  Serious: Yes (Death, Life-Threatening, Hospitalization, Other)
  Sender: FDA-Public Use
  Company Number: US-009507513-1401USA000651

PATIENT
  Sex: Female
  Weight: 50.34 kg

DRUGS (2)
  1. JANUVIA [Suspect]
     Active Substance: SITAGLIPTIN PHOSPHATE
     Indication: TYPE 2 DIABETES MELLITUS
     Dosage: 100 MG, QD
     Route: 048
     Dates: start: 200909, end: 201007
  2. JANUVIA [Suspect]
     Active Substance: SITAGLIPTIN PHOSPHATE
     Dosage: 100 MG, QD
     Route: 048
     Dates: start: 20110329

REACTIONS (12)
  - Osteoporosis [Unknown]
  - Metastases to liver [Fatal]
  - Cholecystectomy [Unknown]
  - Abdominal pain [Unknown]
  - Pancreatic carcinoma metastatic [Fatal]
  - Hypertension [Unknown]
  - Hyperlipidaemia [Unknown]
  - Lip oedema [Unknown]
  - Headache [Unknown]
  - Metastases to lung [Unknown]
  - Pulmonary hilum mass [Unknown]
  - Drug hypersensitivity [Unknown]

NARRATIVE: CASE EVENT DATE: 201106
